FAERS Safety Report 8990515 (Version 1)
Quarter: 2012Q4

REPORT INFORMATION
  Report Type: 
  Country: CA (occurrence: CA)
  Receive Date: 20121228
  Receipt Date: 20121228
  Transmission Date: 20130627
  Serious: Yes (Other)
  Sender: FDA-Public Use
  Company Number: CA-B.I. PHARMACEUTICALS,INC./RIDGEFIELD-2012-CN-02653CN

PATIENT
  Age: 79 Year
  Sex: Male
  Weight: 72.57 kg

DRUGS (8)
  1. PRADAX [Suspect]
     Dosage: 300 mg
     Route: 048
  2. CLONAZEPAM [Concomitant]
  3. NITROGEN [Concomitant]
     Route: 061
  4. NOVO-QUININE [Concomitant]
  5. OXAZEPAM [Concomitant]
  6. PROCTOSEDYL [Concomitant]
  7. PULMICORT [Concomitant]
  8. SEREVENT [Concomitant]

REACTIONS (2)
  - Dizziness [Unknown]
  - Epistaxis [Unknown]
